FAERS Safety Report 12378072 (Version 1)
Quarter: 2016Q2

REPORT INFORMATION
  Report Type: Report from Study
  Country: US (occurrence: US)
  Receive Date: 20160517
  Receipt Date: 20160517
  Transmission Date: 20160815
  Serious: No
  Sender: FDA-Public Use
  Company Number: US-MALLINCKRODT-T201505595

PATIENT
  Age: 79 Year
  Sex: Female

DRUGS (3)
  1. REPOSITORY CORTICOTROPIN INJECTION [Suspect]
     Active Substance: CORTICOTROPIN
     Indication: PROTEINURIA
     Dosage: 40 UNITS EVERY 3 DAYS (ROUTE BOTH IM AND SUBCUTANEOUS)
     Route: 058
     Dates: start: 20151205, end: 201603
  2. REPOSITORY CORTICOTROPIN INJECTION [Suspect]
     Active Substance: CORTICOTROPIN
     Dosage: 20 UNITS EVERY 3 DYS
     Route: 058
  3. REPOSITORY CORTICOTROPIN INJECTION [Suspect]
     Active Substance: CORTICOTROPIN
     Dosage: 20 UNITS EVERY 3 DAYS
     Route: 058
     Dates: start: 201603

REACTIONS (15)
  - Musculoskeletal discomfort [Recovering/Resolving]
  - Fatigue [Not Recovered/Not Resolved]
  - Flatulence [Recovering/Resolving]
  - Dysphonia [Not Recovered/Not Resolved]
  - Rhinorrhoea [Not Recovered/Not Resolved]
  - Injection site haemorrhage [Not Recovered/Not Resolved]
  - Alopecia [Not Recovered/Not Resolved]
  - Abdominal discomfort [Recovering/Resolving]
  - Dyspnoea [Not Recovered/Not Resolved]
  - Asthenia [Not Recovered/Not Resolved]
  - Cushingoid [Not Recovered/Not Resolved]
  - Limb discomfort [Recovering/Resolving]
  - Therapeutic response unexpected [Not Recovered/Not Resolved]
  - Abdominal distension [Recovering/Resolving]
  - Dizziness [Recovering/Resolving]

NARRATIVE: CASE EVENT DATE: 20151205
